FAERS Safety Report 6860936-9 (Version None)
Quarter: 2010Q3

REPORT INFORMATION
  Report Type: 
  Country: None (occurrence: None)
  Receive Date: 20100715
  Receipt Date: 20100705
  Transmission Date: 20110219
  Serious: Yes (Hospitalization)
  Sender: FDA-Public Use
  Company Number: 2010SP034721

PATIENT
  Age: 19 Year
  Sex: Female

DRUGS (1)
  1. IMPLANON [Suspect]
     Dosage: 1 DF
     Dates: start: 20091101, end: 20100616

REACTIONS (2)
  - DEVICE DIFFICULT TO USE [None]
  - WEIGHT INCREASED [None]
